FAERS Safety Report 10946127 (Version 2)
Quarter: 2015Q2

REPORT INFORMATION
  Report Type: Report from Study
  Country: US (occurrence: US)
  Receive Date: 20150323
  Receipt Date: 20150416
  Transmission Date: 20150821
  Serious: Yes (Other)
  Sender: FDA-Public Use
  Company Number: US-AMGEN-USASL2015026064

PATIENT
  Age: 72 Year
  Sex: Female

DRUGS (1)
  1. ENBREL [Suspect]
     Active Substance: ETANERCEPT
     Indication: RHEUMATOID ARTHRITIS
     Dosage: 50 MG, QWK
     Route: 058
     Dates: start: 201412

REACTIONS (5)
  - Back disorder [Unknown]
  - Visual impairment [Unknown]
  - Rheumatoid arthritis [Unknown]
  - Nodule [Recovered/Resolved]
  - Bleeding varicose vein [Recovered/Resolved]

NARRATIVE: CASE EVENT DATE: 2015
